FAERS Safety Report 24462792 (Version 1)
Quarter: 2024Q4

REPORT INFORMATION
  Report Type: Spontaneous
  Country: CN (occurrence: CN)
  Receive Date: 20241018
  Receipt Date: 20241018
  Transmission Date: 20250115
  Serious: Yes (Hospitalization, Other)
  Sender: STERISCIENCE PTE
  Company Number: CN-STERISCIENCE B.V.-2024-ST-001660

PATIENT
  Age: 56 Year
  Sex: Male

DRUGS (12)
  1. MEROPENEM [Suspect]
     Active Substance: MEROPENEM
     Indication: Infection prophylaxis
     Dosage: UNK
     Route: 065
     Dates: start: 2023
  2. MYCOPHENOLATE MOFETIL [Suspect]
     Active Substance: MYCOPHENOLATE MOFETIL
     Indication: Immunosuppressant drug therapy
     Dosage: UNK
     Route: 065
     Dates: start: 2023
  3. LINEZOLID [Suspect]
     Active Substance: LINEZOLID
     Indication: Infection prophylaxis
     Dosage: UNK
     Route: 065
     Dates: start: 2023
  4. VORICONAZOLE [Suspect]
     Active Substance: VORICONAZOLE
     Indication: Infection prophylaxis
     Dosage: UNK
     Route: 065
     Dates: start: 2023, end: 2023
  5. PREDNISOLONE [Suspect]
     Active Substance: PREDNISOLONE
     Indication: Immunosuppressant drug therapy
     Dosage: UNK
     Route: 065
     Dates: start: 2023
  6. TACROLIMUS [Suspect]
     Active Substance: TACROLIMUS
     Indication: Immunosuppressant drug therapy
     Dosage: UNK
     Route: 065
     Dates: start: 2023
  7. CEFOPERAZONE SODIUM [Concomitant]
     Active Substance: CEFOPERAZONE SODIUM
     Indication: Infection prophylaxis
     Dosage: UNK
     Route: 065
     Dates: start: 2023, end: 2023
  8. SULBACTAM SODIUM [Concomitant]
     Active Substance: SULBACTAM SODIUM
     Indication: Infection prophylaxis
     Dosage: UNK
     Route: 065
     Dates: start: 2023, end: 2023
  9. MILRINONE [Concomitant]
     Active Substance: MILRINONE
     Indication: Drug therapy
     Dosage: 0.3 MICROGRAM/KILOGRAM, QMINUTE
     Route: 065
     Dates: start: 2023
  10. EPINEPHRINE [Concomitant]
     Active Substance: EPINEPHRINE
     Indication: Drug therapy
     Dosage: 0.048 MICROGRAM/KILOGRAM, QMINUTE
     Route: 065
     Dates: start: 2023
  11. Immunoglobulin [Concomitant]
     Indication: Product used for unknown indication
     Dosage: UNK
     Route: 065
     Dates: start: 2023
  12. ETANERCEPT [Concomitant]
     Active Substance: ETANERCEPT
     Indication: Product used for unknown indication
     Dosage: UNK
     Route: 065

REACTIONS (3)
  - Pseudomonas infection [Recovered/Resolved]
  - Candida infection [Recovered/Resolved]
  - Drug ineffective [Unknown]

NARRATIVE: CASE EVENT DATE: 20230101
